FAERS Safety Report 11885494 (Version 1)
Quarter: 2015Q4

REPORT INFORMATION
  Report Type: Spontaneous
  Country: US (occurrence: None)
  Receive Date: 20151231
  Receipt Date: 20151231
  Transmission Date: 20160305
  Serious: No
  Sender: FDA-Public Use
  Company Number: None

PATIENT
  Age: 66 Year
  Sex: Male
  Weight: 82.7 kg

DRUGS (1)
  1. LISINOPRIL. [Suspect]
     Active Substance: LISINOPRIL
     Indication: HYPERTENSION
     Route: 048
     Dates: start: 20050401, end: 20151013

REACTIONS (7)
  - Product quality issue [None]
  - Rash pruritic [None]
  - Headache [None]
  - Swelling face [None]
  - Pruritus [None]
  - Urticaria [None]
  - Ear swelling [None]

NARRATIVE: CASE EVENT DATE: 20150928
